FAERS Safety Report 23713806 (Version 2)
Quarter: 2024Q2

REPORT INFORMATION
  Report Type: Report from Study
  Country: US (occurrence: US)
  Receive Date: 20240405
  Receipt Date: 20240502
  Transmission Date: 20240715
  Serious: Yes (Other)
  Sender: FDA-Public Use
  Company Number: US-ABBVIE-5672096

PATIENT
  Sex: Female

DRUGS (1)
  1. HUMIRA [Suspect]
     Active Substance: ADALIMUMAB
     Indication: Hidradenitis
     Dosage: FORM STRENGTH: 40 MILLIGRAM, CITRATE FREE
     Route: 058
     Dates: start: 20230720

REACTIONS (6)
  - Rotator cuff syndrome [Recovering/Resolving]
  - Memory impairment [Not Recovered/Not Resolved]
  - Arthropathy [Recovering/Resolving]
  - Fall [Unknown]
  - Arthralgia [Unknown]
  - Pain in jaw [Unknown]
